FAERS Safety Report 7966544-0 (Version None)
Quarter: 2011Q4

REPORT INFORMATION
  Report Type: 
  Country: None (occurrence: None)
  Receive Date: 20111208
  Receipt Date: 20111129
  Transmission Date: 20120403
  Serious: Yes (Hospitalization)
  Sender: FDA-Public Use
  Company Number: US-ASTRAZENECA-2011SE67789

PATIENT
  Age: 62 Year
  Sex: Female
  Weight: 62.6 kg

DRUGS (6)
  1. COREG [Concomitant]
  2. ALPRAZOLAM [Concomitant]
  3. PLAVIX [Concomitant]
  4. XANAX [Concomitant]
  5. CRESTOR [Suspect]
     Route: 048
  6. CRESTOR [Suspect]
     Dosage: SPLITTING TABLET IN HALF
     Route: 048

REACTIONS (2)
  - CEREBROVASCULAR ACCIDENT [None]
  - WRONG TECHNIQUE IN DRUG USAGE PROCESS [None]
